FAERS Safety Report 20680587 (Version 1)
Quarter: 2022Q2

REPORT INFORMATION
  Report Type: Spontaneous
  Country: US (occurrence: US)
  Receive Date: 20220406
  Receipt Date: 20220406
  Transmission Date: 20220721
  Serious: Yes (Other)
  Sender: FDA-Public Use
  Company Number: US-PFIZER INC-202200494053

PATIENT

DRUGS (2)
  1. VIAGRA [Suspect]
     Active Substance: SILDENAFIL CITRATE
     Indication: Erectile dysfunction
     Dosage: UNK
  2. ISOSORBIDE [Suspect]
     Active Substance: ISOSORBIDE
     Dosage: UNK

REACTIONS (4)
  - Prostatic disorder [Unknown]
  - Contraindicated product administered [Unknown]
  - Drug ineffective [Unknown]
  - Therapeutic response unexpected [Recovering/Resolving]
